FAERS Safety Report 7626676-3 (Version None)
Quarter: 2011Q3

REPORT INFORMATION
  Report Type: 
  Country: None (occurrence: None)
  Receive Date: 20110721
  Receipt Date: 20110715
  Transmission Date: 20111222
  Serious: Yes (Other)
  Sender: FDA-Public Use
  Company Number: US-ROCHE-790326

PATIENT
  Sex: Female

DRUGS (1)
  1. BONIVA [Suspect]
     Route: 065

REACTIONS (5)
  - FAECES HARD [None]
  - HAEMORRHAGE [None]
  - WEIGHT DECREASED [None]
  - CONSTIPATION [None]
  - DEHYDRATION [None]
